FAERS Safety Report 5486039-6 (Version None)
Quarter: 2007Q4

REPORT INFORMATION
  Report Type: 
  Country: None (occurrence: None)
  Receive Date: 20071012
  Receipt Date: 20071001
  Transmission Date: 20080405
  Serious: Yes (Hospitalization)
  Sender: FDA-Public Use
  Company Number: B0058197A

PATIENT
  Age: 40 Year
  Sex: Female

DRUGS (3)
  1. FORTAZ [Suspect]
     Dosage: INTRAVENOUS
     Route: 042
     Dates: start: 19970606, end: 19970615
  2. MEZLOCILLIN (FORMULATION UNKNOWN) (MEZLOCILLIN) [Suspect]
  3. RANITIDINE HYDROCHLORIDE [Concomitant]

REACTIONS (5)
  - AGRANULOCYTOSIS [None]
  - HAEMOGLOBIN DECREASED [None]
  - PLATELET COUNT DECREASED [None]
  - SEPSIS [None]
  - WHITE BLOOD CELL COUNT DECREASED [None]
